FAERS Safety Report 13493983 (Version 5)
Quarter: 2017Q4

REPORT INFORMATION
  Report Type: Spontaneous
  Country: BR (occurrence: BR)
  Receive Date: 20170427
  Receipt Date: 20171114
  Transmission Date: 20180320
  Serious: Yes (Other)
  Sender: FDA-Public Use
  Company Number: BR-MYLANLABS-2017M1024901

PATIENT
  Age: 31 Year
  Sex: Female
  Weight: 104 kg

DRUGS (5)
  1. ACICLOVIR [Suspect]
     Active Substance: ACYCLOVIR
     Indication: PRODUCT USED FOR UNKNOWN INDICATION
     Dosage: UNK, 20 TABLETS FOR 10 DAYS
  2. BENLYSTA [Suspect]
     Active Substance: BELIMUMAB
     Dosage: UNK
     Dates: start: 20170921
  3. BENLYSTA [Suspect]
     Active Substance: BELIMUMAB
     Dosage: UNK
     Dates: start: 20170727
  4. BENLYSTA [Suspect]
     Active Substance: BELIMUMAB
     Indication: SYSTEMIC LUPUS ERYTHEMATOSUS
     Dosage: 10 MG/1G, ON DAYS 0, 14 AND 28, AND THEREAFTER, AT 4 WEEK INTERVALS
     Dates: start: 20140117
  5. BENLYSTA [Suspect]
     Active Substance: BELIMUMAB
     Dosage: UNK
     Dates: start: 20170126

REACTIONS (28)
  - Hemiplegia [Unknown]
  - Arthralgia [Unknown]
  - Cold sweat [Unknown]
  - Circumstance or information capable of leading to medication error [Unknown]
  - Liver disorder [Unknown]
  - Dyspnoea [Unknown]
  - Pallor [Unknown]
  - Viral infection [Recovered/Resolved]
  - Cough [Unknown]
  - Otorrhoea [Unknown]
  - Tremor [Unknown]
  - Tooth disorder [Unknown]
  - Infection [Unknown]
  - Malaise [Recovering/Resolving]
  - Feeling cold [Unknown]
  - Systemic lupus erythematosus disease activity index abnormal [Unknown]
  - Vomiting [Recovering/Resolving]
  - Onychomadesis [Unknown]
  - Back pain [Unknown]
  - Abdominal pain upper [Recovering/Resolving]
  - Diarrhoea [Recovering/Resolving]
  - Nausea [Unknown]
  - Medication error [Unknown]
  - Bursitis [Unknown]
  - Hypersensitivity [Unknown]
  - Blood pressure increased [Unknown]
  - Yellow skin [Recovering/Resolving]
  - Weight decreased [Unknown]

NARRATIVE: CASE EVENT DATE: 20170220
